FAERS Safety Report 14966643 (Version 1)
Quarter: 2018Q2

REPORT INFORMATION
  Report Type: Spontaneous
  Country: JP (occurrence: JP)
  Receive Date: 20180604
  Receipt Date: 20180604
  Transmission Date: 20180711
  Serious: Yes (Life-Threatening, Other)
  Sender: FDA-Public Use
  Company Number: JP-CONCORDIA PHARMACEUTICALS INC.-E2B_00012037

PATIENT
  Age: 71 Year
  Sex: Male

DRUGS (3)
  1. PREDNISOLONE. [Suspect]
     Active Substance: PREDNISOLONE
     Indication: SARCOIDOSIS
  2. PREDNISOLONE. [Suspect]
     Active Substance: PREDNISOLONE
  3. MIZORIBINE [Suspect]
     Active Substance: MIZORIBINE
     Indication: SARCOIDOSIS

REACTIONS (4)
  - Gastric ulcer [Unknown]
  - Kaposi^s sarcoma [Recovering/Resolving]
  - Condition aggravated [Recovering/Resolving]
  - Anaemia [Unknown]
